FAERS Safety Report 16791150 (Version 2)
Quarter: 2019Q3

REPORT INFORMATION
  Report Type: Spontaneous
  Country: GB (occurrence: GB)
  Receive Date: 20190910
  Receipt Date: 20190920
  Transmission Date: 20191005
  Serious: Yes (Other)
  Sender: FDA-Public Use
  Company Number: GB-INCYTE CORPORATION-2019IN009085

PATIENT

DRUGS (3)
  1. ASPIRIN. [Concomitant]
     Active Substance: ASPIRIN
     Indication: PRODUCT USED FOR UNKNOWN INDICATION
     Dosage: 75 MG, QOD
     Route: 065
  2. JAKAVI [Suspect]
     Active Substance: RUXOLITINIB
     Indication: MYELOFIBROSIS
     Dosage: 15 MG, BID
     Route: 065
     Dates: start: 20131106
  3. JAKAVI [Suspect]
     Active Substance: RUXOLITINIB
     Dosage: 10 MG, BID
     Route: 065
     Dates: start: 201401

REACTIONS (13)
  - Anaemia [Unknown]
  - Weight increased [Unknown]
  - Epistaxis [Unknown]
  - Malaise [Unknown]
  - Platelet count decreased [Unknown]
  - Skin cancer [Unknown]
  - Skin graft failure [Unknown]
  - Rash macular [Unknown]
  - Contusion [Unknown]
  - Rosacea [Recovered/Resolved]
  - Blood cholesterol increased [Unknown]
  - Dyspnoea [Unknown]
  - Skin graft infection [Unknown]
